FAERS Safety Report 20597281 (Version 2)
Quarter: 2022Q2

REPORT INFORMATION
  Report Type: Spontaneous
  Country: US (occurrence: US)
  Receive Date: 20220315
  Receipt Date: 20220425
  Transmission Date: 20220720
  Serious: No
  Sender: FDA-Public Use
  Company Number: US-PFIZER INC-202200277021

PATIENT
  Age: 7 Year
  Sex: Female
  Weight: 43.09 kg

DRUGS (2)
  1. GENOTROPIN [Suspect]
     Active Substance: SOMATROPIN
     Indication: Prader-Willi syndrome
     Dosage: 1.02 MG (INJECTED NIGHTLY FOR 6 NIGHTS WITH ONE DAY REST)
     Dates: start: 2017
  2. CARNITINE [Concomitant]
     Active Substance: CARNITINE
     Indication: Prader-Willi syndrome
     Dosage: UNK (LIQUID FORM AND THEN POWDERED IN CAPSULE FORM THEY PUT IN YOGURT)
     Dates: end: 202112

REACTIONS (5)
  - Drug dose omission by device [Unknown]
  - Device use issue [Unknown]
  - Device ineffective [Unknown]
  - Device malfunction [Unknown]
  - Device mechanical issue [Unknown]

NARRATIVE: CASE EVENT DATE: 20220214
